FAERS Safety Report 6981051-X (Version None)
Quarter: 2010Q3

REPORT INFORMATION
  Report Type: 
  Country: None (occurrence: None)
  Receive Date: 20100914
  Receipt Date: 20100803
  Transmission Date: 20110219
  Serious: Yes (Hospitalization)
  Sender: FDA-Public Use
  Company Number: US-BAYER-200938990NA

PATIENT
  Age: 25 Year
  Sex: Female
  Weight: 65 kg

DRUGS (11)
  1. YASMIN [Suspect]
     Indication: CONTRACEPTION
     Route: 048
     Dates: start: 20020101, end: 20030702
  2. ORTHO TRI-CYCLEN LO [Suspect]
     Dates: start: 20030716, end: 20030901
  3. DOXYCYCLINE [Concomitant]
  4. MINOCYCLINE HCL [Concomitant]
  5. CELEBREX [Concomitant]
  6. AMBIEN [Concomitant]
  7. ASCORBIC ACID [Concomitant]
  8. PROTONIX [Concomitant]
  9. VICODIN [Concomitant]
  10. COLACE [Concomitant]
  11. ZOFRAN [Concomitant]

REACTIONS (13)
  - ABDOMINAL PAIN [None]
  - CHEST PAIN [None]
  - DIZZINESS [None]
  - DYSPNOEA [None]
  - FATIGUE [None]
  - HYPOTENSION [None]
  - INTESTINAL OBSTRUCTION [None]
  - JUGULAR VEIN THROMBOSIS [None]
  - MESENTERIC VEIN THROMBOSIS [None]
  - NAUSEA [None]
  - PULMONARY EMBOLISM [None]
  - PULMONARY HYPERTENSION [None]
  - VOMITING [None]
